FAERS Safety Report 7232352-1 (Version None)
Quarter: 2010Q4

REPORT INFORMATION
  Report Type: 
  Country: None (occurrence: None)
  Receive Date: 20101029
  Receipt Date: 20100126
  Transmission Date: 20110411
  Serious: Yes (Hospitalization)
  Sender: FDA-Public Use
  Company Number: 2010-0321

PATIENT
  Age: 13 Year
  Sex: Male
  Weight: 32.5 kg

DRUGS (16)
  1. INCRELEX [Suspect]
     Indication: INSULIN-LIKE GROWTH FACTOR DECREASED
     Dosage: 8 MG (4 MG), SUBCUTANEOUS
     Route: 058
     Dates: start: 20070806
  2. ULTRASE MT 20 (PANCRELIPASE) [Concomitant]
  3. MIRALAX [Concomitant]
  4. DULCOSATE (ALL OTHER THERAPEUTIC PRODUCTS) [Concomitant]
  5. SENNA (SENNA ALEXANDRINA) [Concomitant]
  6. PANTOPRAZOLE [Concomitant]
  7. CALCIUM CARBONATE [Concomitant]
  8. CF MULTIVITAMIN (MULTIVITAMIN /00831701/) [Concomitant]
  9. ZOFRAN (ONDANSENTRON) [Concomitant]
  10. REGLAN [Concomitant]
  11. MELATONIN (MELATONIN) [Concomitant]
  12. ADVAIR HFA [Concomitant]
  13. FERROUS SULFATE TAB [Concomitant]
  14. TOBRAMYCIN [Concomitant]
  15. AZITHROMYCIN [Concomitant]
  16. ALBUTEROL [Concomitant]

REACTIONS (2)
  - CONDITION AGGRAVATED [None]
  - CYSTIC FIBROSIS [None]
